FAERS Safety Report 7843559-4 (Version None)
Quarter: 2011Q4

REPORT INFORMATION
  Report Type: 
  Country: None (occurrence: None)
  Receive Date: 20111014
  Receipt Date: 20111007
  Transmission Date: 20120403
  Serious: Yes (Other)
  Sender: FDA-Public Use
  Company Number: 2011SP047586

PATIENT
  Sex: Female

DRUGS (1)
  1. IMPLANON [Suspect]
     Indication: CONTRACEPTION
     Dates: start: 20100101, end: 20110922

REACTIONS (4)
  - ABORTION SPONTANEOUS [None]
  - PREGNANCY TEST POSITIVE [None]
  - VAGINAL HAEMORRHAGE [None]
  - MATERNAL EXPOSURE DURING PREGNANCY [None]
